FAERS Safety Report 9080742 (Version 1)
Quarter: 2013Q1

REPORT INFORMATION
  Report Type: Report from Study
  Country: US (occurrence: US)
  Receive Date: 20130130
  Receipt Date: 20130130
  Transmission Date: 20140127
  Serious: No
  Sender: FDA-Public Use
  Company Number: US-ABBOTT-12P-163-0961683-00

PATIENT
  Age: 56 Year
  Sex: Female

DRUGS (10)
  1. HUMIRA 40 MG/0.8 ML PEN [Suspect]
     Indication: PSORIASIS
     Dates: start: 20120601
  2. TRAZODONE [Concomitant]
     Indication: PRODUCT USED FOR UNKNOWN INDICATION
  3. CITALOPRAM [Concomitant]
     Indication: DEPRESSION
  4. DIOVAN [Concomitant]
     Indication: HYPERTENSION
  5. CLESTRIL [Concomitant]
     Indication: BLOOD CHOLESTEROL INCREASED
  6. CUMEPRIDE [Concomitant]
     Indication: DIABETES MELLITUS
  7. MELOXICAM [Concomitant]
     Indication: INFLAMMATION
  8. LASIX [Concomitant]
     Indication: HYPERTENSION
  9. HYDROCODONE [Concomitant]
     Indication: PAIN
  10. CLORIPAM [Concomitant]
     Indication: PRODUCT USED FOR UNKNOWN INDICATION

REACTIONS (4)
  - Wrong technique in drug usage process [Recovering/Resolving]
  - Incorrect dose administered [Recovering/Resolving]
  - Hypoaesthesia [Recovering/Resolving]
  - Injection site pain [Recovering/Resolving]
